FAERS Safety Report 21760501 (Version 1)
Quarter: 2022Q4

REPORT INFORMATION
  Report Type: Spontaneous
  Country: US (occurrence: None)
  Receive Date: 20221220
  Receipt Date: 20221220
  Transmission Date: 20230113
  Serious: Yes (Hospitalization)
  Sender: FDA-Public Use
  Company Number: None

PATIENT
  Sex: Male

DRUGS (17)
  1. XOLAIR [Suspect]
     Active Substance: OMALIZUMAB
     Indication: Idiopathic urticaria
     Dosage: FREQUENCY : AS DIRECTED;?
     Route: 058
     Dates: start: 20220824
  2. AZELASTINE [Concomitant]
     Active Substance: AZELASTINE
  3. DICLOFENAC POW SODIUM [Concomitant]
  4. IBUPROFEN TAB [Concomitant]
  5. IPRATROPIUM/SOLALBUTER [Concomitant]
  6. LAMOTRIGINE [Concomitant]
     Active Substance: LAMOTRIGINE
  7. LAMOTRIGINE [Concomitant]
     Active Substance: LAMOTRIGINE
  8. LIDOCAINE [Concomitant]
     Active Substance: LIDOCAINE
  9. LOSARTAN POT TAB [Concomitant]
  10. PROAIR HFA [Concomitant]
     Active Substance: ALBUTEROL SULFATE
  11. TADALAFIL POW [Concomitant]
  12. TESTOPEL MIS PELLETS [Concomitant]
  13. TIZANIDINE TAB [Concomitant]
  14. TRIAMCINOLON CRE [Concomitant]
  15. VITAMIN D2 TAB [Concomitant]
  16. VYVANSE CAP [Concomitant]
  17. WEGOVY INJ [Concomitant]

REACTIONS (1)
  - Neck surgery [None]
